FAERS Safety Report 19882831 (Version 1)
Quarter: 2021Q3

REPORT INFORMATION
  Report Type: Report from Study
  Country: None (occurrence: US)
  Receive Date: 20210924
  Receipt Date: 20210924
  Transmission Date: 20211014
  Serious: Yes (Other)
  Sender: FDA-Public Use
  Company Number: US-ABBVIE-21K-163-4053978-00

PATIENT
  Sex: Male

DRUGS (2)
  1. HUMIRA [Suspect]
     Active Substance: ADALIMUMAB
     Indication: PSORIASIS
     Dosage: CITRATE FREE
     Route: 058
  2. HUMIRA [Suspect]
     Active Substance: ADALIMUMAB
     Dosage: CITRATE FREE
     Route: 058

REACTIONS (14)
  - Hernia [Unknown]
  - Vein rupture [Unknown]
  - Arterial occlusive disease [Unknown]
  - Cardiac dysfunction [Unknown]
  - Peripheral swelling [Unknown]
  - Post-traumatic stress disorder [Not Recovered/Not Resolved]
  - Myocardial infarction [Unknown]
  - Nephropathy [Not Recovered/Not Resolved]
  - Nephrolithiasis [Unknown]
  - Nervous system disorder [Unknown]
  - Renal disorder [Unknown]
  - Diabetes mellitus [Unknown]
  - Swelling [Unknown]
  - Urinary tract disorder [Unknown]

NARRATIVE: CASE EVENT DATE: 2013
